FAERS Safety Report 15937526 (Version 1)
Quarter: 2019Q1

REPORT INFORMATION
  Report Type: Report from Study
  Country: US (occurrence: US)
  Receive Date: 20190208
  Receipt Date: 20190208
  Transmission Date: 20190417
  Serious: Yes (Death, Other)
  Sender: FDA-Public Use
  Company Number: US-REGENERON PHARMACEUTICALS, INC.-2019-11028

PATIENT

DRUGS (15)
  1. EYLEA [Suspect]
     Active Substance: AFLIBERCEPT
     Dosage: UNK DOSAGE, 1 INJ EVERY 4-6 WEEKS
     Route: 031
     Dates: start: 20150716, end: 20150716
  2. EYLEA [Suspect]
     Active Substance: AFLIBERCEPT
     Indication: MACULAR OEDEMA
     Dosage: UNK DOSAGE, 1 INJ EVERY 4-6 WEEKS
     Route: 031
     Dates: start: 20141104, end: 20141104
  3. EYLEA [Suspect]
     Active Substance: AFLIBERCEPT
     Dosage: UNK DOSAGE, 1 INJ EVERY 4-6 WEEKS
     Route: 031
     Dates: start: 20150106, end: 20150106
  4. EYLEA [Suspect]
     Active Substance: AFLIBERCEPT
     Dosage: UNK DOSAGE, 1 INJ EVERY 4-6 WEEKS
     Route: 031
     Dates: start: 20160310, end: 20160310
  5. EYLEA [Suspect]
     Active Substance: AFLIBERCEPT
     Dosage: UNK DOSAGE, 1 INJ EVERY 4-6 WEEKS
     Route: 031
     Dates: start: 20170606, end: 20170606
  6. EYLEA [Suspect]
     Active Substance: AFLIBERCEPT
     Dosage: UNK DOSAGE, 1 INJ EVERY 4-6 WEEKS
     Route: 031
     Dates: start: 20151201, end: 20151201
  7. EYLEA [Suspect]
     Active Substance: AFLIBERCEPT
     Dosage: UNK DOSAGE, 1 INJ EVERY 4-6 WEEKS
     Route: 031
     Dates: start: 20170829, end: 20170829
  8. EYLEA [Suspect]
     Active Substance: AFLIBERCEPT
     Dosage: UNK DOSAGE, 1 INJ EVERY 4-6 WEEKS
     Route: 031
     Dates: start: 20150219, end: 20150219
  9. EYLEA [Suspect]
     Active Substance: AFLIBERCEPT
     Dosage: UNK DOSAGE, 1 INJ EVERY 4-6 WEEKS
     Route: 031
     Dates: start: 20160104, end: 20160104
  10. EYLEA [Suspect]
     Active Substance: AFLIBERCEPT
     Dosage: UNK DOSAGE, 1 INJ EVERY 4-6 WEEKS
     Route: 031
     Dates: start: 20150409, end: 20150409
  11. EYLEA [Suspect]
     Active Substance: AFLIBERCEPT
     Dosage: UNK DOSAGE, 1 INJ EVERY 4-6 WEEKS
     Route: 031
     Dates: start: 20150604, end: 20150604
  12. EYLEA [Suspect]
     Active Substance: AFLIBERCEPT
     Dosage: UNK DOSAGE, 1 INJ EVERY 4-6 WEEKS
     Route: 031
     Dates: start: 20150901, end: 20150901
  13. EYLEA [Suspect]
     Active Substance: AFLIBERCEPT
     Indication: RETINAL VEIN OCCLUSION
     Dosage: UNK DOSAGE, 1 INJ EVERY 4-6 WEEKS
     Route: 031
     Dates: start: 20140918, end: 20140918
  14. EYLEA [Suspect]
     Active Substance: AFLIBERCEPT
     Dosage: UNK DOSAGE, 1 INJ EVERY 4-6 WEEKS
     Route: 031
     Dates: start: 20151022, end: 20151022
  15. EYLEA [Suspect]
     Active Substance: AFLIBERCEPT
     Dosage: UNK DOSAGE, 1 INJ EVERY 4-6 WEEKS
     Route: 031
     Dates: start: 20160421, end: 20160421

REACTIONS (1)
  - Death [Fatal]
